FAERS Safety Report 5591441-8 (Version None)
Quarter: 2008Q1

REPORT INFORMATION
  Report Type: 
  Country: None (occurrence: None)
  Receive Date: 20080111
  Receipt Date: 20080111
  Transmission Date: 20080703
  Serious: No
  Sender: FDA-Public Use
  Company Number: None

PATIENT
  Age: 30 Year
  Sex: Male
  Weight: 181.4388 kg

DRUGS (1)
  1. PRIMATENE MIST [Suspect]
     Dosage: 1 SPRAY  EVERY 4 HOURS
     Dates: start: 19850606, end: 20070130

REACTIONS (2)
  - ENAMEL ANOMALY [None]
  - TOOTH DISORDER [None]
